FAERS Safety Report 7233449-2 (Version None)
Quarter: 2011Q2

REPORT INFORMATION
  Report Type: 
  Country: None (occurrence: None)
  Receive Date: 20110119
  Receipt Date: 20110110
  Transmission Date: 20111010
  Serious: Yes (Hospitalization)
  Sender: FDA-Public Use
  Company Number: FR-PFIZER INC-2005006536

PATIENT
  Age: 59 Year
  Sex: Female
  Weight: 57 kg

DRUGS (6)
  1. FLUOROURACIL [Suspect]
     Indication: BREAST CANCER
     Dosage: 800 MG, CYCLIC
     Route: 042
     Dates: start: 20040726, end: 20040726
  2. CYCLOPHOSPHAMIDE [Suspect]
     Indication: BREAST CANCER
     Dosage: 800 MG, CYCLIC
     Route: 042
     Dates: start: 20040726, end: 20040726
  3. FILGRASTIM [Suspect]
     Indication: AGRANULOCYTOSIS
     Route: 058
  4. EPIRUBICIN HYDROCHLORIDE [Suspect]
     Indication: BREAST CANCER
     Dosage: 170 MG, CYCLIC
     Route: 042
     Dates: start: 20040726, end: 20040726
  5. DEXRAZOXANE [Suspect]
     Indication: BREAST CANCER
     Dosage: 1700 MG, CYCLIC
     Route: 042
     Dates: start: 20040726, end: 20040726
  6. ZOLEDRONIC ACID [Suspect]
     Indication: ILL-DEFINED DISORDER
     Route: 042
     Dates: end: 20040821

REACTIONS (4)
  - HYPOPHOSPHATAEMIA [None]
  - PROTEINURIA [None]
  - HYPOKALAEMIA [None]
  - RENAL TUBULAR DISORDER [None]
